FAERS Safety Report 6040253-X (Version None)
Quarter: 2009Q1

REPORT INFORMATION
  Report Type: 
  Country: None (occurrence: None)
  Receive Date: 20090116
  Receipt Date: 20080128
  Transmission Date: 20090719
  Serious: No
  Sender: FDA-Public Use
  Company Number: US-BRISTOL-MYERS SQUIBB COMPANY-14056170

PATIENT
  Age: 73 Year
  Sex: Male
  Weight: 73 kg

DRUGS (8)
  1. ABILIFY [Suspect]
     Indication: DEPRESSION
     Route: 048
     Dates: start: 20080124
  2. PROTONIX [Concomitant]
  3. AMBIEN [Concomitant]
  4. ELAVIL [Concomitant]
  5. DIOVAN [Concomitant]
  6. FLOMAX [Concomitant]
  7. ATIVAN [Concomitant]
  8. REMERON [Concomitant]

REACTIONS (1)
  - CONSTIPATION [None]
